FAERS Safety Report 25636964 (Version 1)
Quarter: 2025Q3

REPORT INFORMATION
  Report Type: Spontaneous
  Country: US (occurrence: US)
  Receive Date: 20250804
  Receipt Date: 20250804
  Transmission Date: 20251021
  Serious: No
  Sender: ACCORD
  Company Number: US-Accord-470537

PATIENT
  Age: 50 Year
  Sex: Female

DRUGS (2)
  1. DOCETAXEL [Suspect]
     Active Substance: DOCETAXEL
     Indication: Breast cancer
     Dates: start: 20190916, end: 20191127
  2. CYCLOPHOSPHAMIDE [Suspect]
     Active Substance: CYCLOPHOSPHAMIDE
     Indication: Breast cancer
     Dates: start: 20190916, end: 20191127

REACTIONS (2)
  - Lacrimation increased [Unknown]
  - Lacrimal structure injury [Unknown]

NARRATIVE: CASE EVENT DATE: 20191101
